FAERS Safety Report 25128545 (Version 1)
Quarter: 2025Q1

REPORT INFORMATION
  Report Type: Spontaneous
  Country: FR (occurrence: FR)
  Receive Date: 20250327
  Receipt Date: 20250327
  Transmission Date: 20250408
  Serious: Yes (Other)
  Sender: RANBAXY
  Company Number: FR-AFSSAPS-AVPO2025000023

PATIENT
  Age: 31 Year
  Sex: Female

DRUGS (7)
  1. PAROXETINE [Suspect]
     Active Substance: PAROXETINE
     Indication: Product used for unknown indication
     Route: 065
     Dates: end: 20240804
  2. AMB-FUBINACA [Suspect]
     Active Substance: AMB-FUBINACA
     Indication: Product used for unknown indication
     Route: 065
     Dates: end: 20240804
  3. FLUBROMAZOLAM [Suspect]
     Active Substance: FLUBROMAZOLAM
     Indication: Product used for unknown indication
     Route: 065
     Dates: end: 20240804
  4. KETAMINE [Suspect]
     Active Substance: KETAMINE
     Indication: Product used for unknown indication
     Route: 065
     Dates: end: 20240804
  5. METHADONE [Suspect]
     Active Substance: METHADONE HYDROCHLORIDE
     Indication: Product substitution
     Route: 065
     Dates: end: 20240804
  6. DIAZEPAM [Suspect]
     Active Substance: DIAZEPAM
     Indication: Product used for unknown indication
     Route: 065
     Dates: end: 20240804
  7. HYDROXYZINE [Suspect]
     Active Substance: HYDROXYZINE HYDROCHLORIDE
     Indication: Product used for unknown indication
     Route: 065
     Dates: end: 20240804

REACTIONS (4)
  - Drug abuse [Recovered/Resolved]
  - Coma [Recovered/Resolved]
  - Bradycardia [Recovered/Resolved]
  - Bradypnoea [Recovered/Resolved]

NARRATIVE: CASE EVENT DATE: 20240803
